FAERS Safety Report 18315362 (Version 1)
Quarter: 2020Q3

REPORT INFORMATION
  Report Type: Spontaneous
  Country: GB (occurrence: GB)
  Receive Date: 20200926
  Receipt Date: 20200926
  Transmission Date: 20201103
  Serious: Yes (Hospitalization, Disabling, Congenital Anomaly, Other)
  Sender: FDA-Public Use
  Company Number: GB-ACCORD-089062

PATIENT
  Age: 37 Month

DRUGS (3)
  1. AMITRIPTYLINE [Suspect]
     Active Substance: AMITRIPTYLINE
     Route: 064
  2. DIAZEPAM. [Suspect]
     Active Substance: DIAZEPAM
     Route: 064
  3. METHADONE [Suspect]
     Active Substance: METHADONE HYDROCHLORIDE
     Route: 064

REACTIONS (6)
  - Nystagmus [Unknown]
  - Microcephaly [Unknown]
  - Developmental delay [Unknown]
  - Foetal exposure during pregnancy [Unknown]
  - Teratogenicity [Unknown]
  - Drug withdrawal syndrome neonatal [Unknown]
